FAERS Safety Report 9490436 (Version 1)
Quarter: 2013Q3

REPORT INFORMATION
  Report Type: Spontaneous
  Country: US (occurrence: None)
  Receive Date: 20130826
  Receipt Date: 20130826
  Transmission Date: 20140515
  Serious: Yes (Other)
  Sender: FDA-Public Use
  Company Number: ACO_37982_2013

PATIENT
  Age: 73 Year
  Sex: Female
  Weight: 70.3 kg

DRUGS (8)
  1. AMPYRA [Suspect]
     Indication: MULTIPLE SCLEROSIS
     Route: 048
     Dates: start: 2011, end: 2011
  2. ALEVE (NAPROXEN SODIUM) [Concomitant]
  3. NEUROTRONIN (GABEPNETIN) [Concomitant]
  4. SIMVASTATIN (SIMVASTATIN) [Concomitant]
  5. FLUOXETINE (FLUOXETINE HYDROCHLORIDE) [Concomitant]
  6. BACLOFEN (BACLOFEN) [Concomitant]
  7. OXYBUTYNIN (OXYBUTYNIN HYDROCHLORIDE) [Concomitant]
  8. CALCIUM WITH VITAMIN D (CALCIUM PHOSPHATE, CALCIUM SODIUM LACTATE, ERGOCACIFEROL) [Concomitant]

REACTIONS (3)
  - Gallbladder operation [None]
  - Breast disorder female [None]
  - Therapy cessation [None]
